FAERS Safety Report 22600472 (Version 1)
Quarter: 2023Q2

REPORT INFORMATION
  Report Type: Spontaneous
  Country: JP (occurrence: JP)
  Receive Date: 20230614
  Receipt Date: 20230614
  Transmission Date: 20230721
  Serious: Yes (Other)
  Sender: FDA-Public Use
  Company Number: JP-ELI_LILLY_AND_COMPANY-JP202306006187

PATIENT
  Age: 78 Year
  Sex: Male
  Weight: 58.7 kg

DRUGS (13)
  1. CYRAMZA [Suspect]
     Active Substance: RAMUCIRUMAB
     Indication: Colon cancer
     Dosage: 8 MG/KG, OTHER
     Route: 041
     Dates: start: 20221115, end: 20230207
  2. IRINOTECAN HYDROCHLORIDE [Concomitant]
     Active Substance: IRINOTECAN HYDROCHLORIDE
     Indication: Colon cancer
     Route: 041
  3. FLUOROURACIL [Concomitant]
     Active Substance: FLUOROURACIL
     Indication: Colon cancer
     Route: 040
  4. LEVOLEUCOVORIN CALCIUM [Concomitant]
     Active Substance: LEVOLEUCOVORIN CALCIUM
     Indication: Colon cancer
     Route: 041
  5. PALONOSETRON [Concomitant]
     Active Substance: PALONOSETRON
     Route: 042
  6. DEXAMETHASONE SODIUM PHOSPHATE [Concomitant]
     Active Substance: DEXAMETHASONE SODIUM PHOSPHATE
     Route: 042
  7. ISOTONIC SODIUM CHLORIDE SOLUTION [Concomitant]
     Active Substance: SODIUM CHLORIDE
  8. POLARAMINE [Concomitant]
     Active Substance: DEXCHLORPHENIRAMINE MALEATE
     Route: 042
  9. DECADRON [Concomitant]
     Active Substance: DEXAMETHASONE
     Dosage: 4 DOSAGE FORM, OTHER
     Route: 048
  10. ATORVASTATIN [Concomitant]
     Active Substance: ATORVASTATIN
     Dosage: 10 DOSAGE FORM
     Route: 048
  11. LANSOPRAZOLE [Concomitant]
     Active Substance: LANSOPRAZOLE
     Dosage: 15 DOSAGE FORM
     Route: 048
  12. MAGNESIUM OXIDE [Concomitant]
     Active Substance: MAGNESIUM OXIDE
     Dosage: 250 DOSAGE FORM
     Route: 048
  13. IOPAMIDOL [Concomitant]
     Active Substance: IOPAMIDOL
     Dosage: 100 ML
     Route: 042
     Dates: start: 20230214

REACTIONS (3)
  - Pelvic venous thrombosis [Recovering/Resolving]
  - Faeces discoloured [Unknown]
  - Postoperative lymphocele [Unknown]

NARRATIVE: CASE EVENT DATE: 20230214
